FAERS Safety Report 6150105-2 (Version None)
Quarter: 2009Q2

REPORT INFORMATION
  Report Type: 
  Country: None (occurrence: None)
  Receive Date: 20090409
  Receipt Date: 20090331
  Transmission Date: 20091009
  Serious: Yes (Other)
  Sender: FDA-Public Use
  Company Number: US-PFIZER INC-2009192533

PATIENT
  Sex: Female

DRUGS (11)
  1. FLAGYL [Suspect]
     Indication: LYME DISEASE
     Route: 048
  2. XANAX [Suspect]
     Indication: SLEEP DISORDER
  3. KETEK [Suspect]
     Indication: LYME DISEASE
     Dosage: 800 MG, UNK
     Dates: end: 20090201
  4. HOMEOPATHIC PREPARATION [Suspect]
  5. IRON [Suspect]
     Indication: IRON DEFICIENCY ANAEMIA
     Dosage: UNK
     Dates: start: 20090101
  6. CYANOCOBALAMIN [Suspect]
  7. NYSTATIN [Suspect]
     Indication: FUNGAL INFECTION
     Route: 048
  8. VALIUM [Suspect]
     Indication: SLEEP DISORDER
     Route: 048
  9. CYMBALTA [Suspect]
     Route: 048
  10. DOXYCYCLINE HCL [Suspect]
     Indication: LYME DISEASE
     Dosage: 100 MG, 2X/DAY
     Route: 048
  11. PLAQUENIL [Concomitant]

REACTIONS (12)
  - ALANINE AMINOTRANSFERASE INCREASED [None]
  - ASPARTATE AMINOTRANSFERASE INCREASED [None]
  - BLOOD LACTATE DEHYDROGENASE INCREASED [None]
  - DYSGEUSIA [None]
  - HEART RATE INCREASED [None]
  - HEART RATE IRREGULAR [None]
  - HEPATIC ENZYME INCREASED [None]
  - IRON DEFICIENCY ANAEMIA [None]
  - NAUSEA [None]
  - OFF LABEL USE [None]
  - PYREXIA [None]
  - SOMNOLENCE [None]
